FAERS Safety Report 4845622-9 (Version None)
Quarter: 2005Q4

REPORT INFORMATION
  Report Type: 
  Country: None (occurrence: None)
  Receive Date: 20051205
  Receipt Date: 20051130
  Transmission Date: 20060501
  Serious: Yes (Hospitalization)
  Sender: FDA-Public Use
  Company Number: US-MERCK-0512USA00132

PATIENT
  Age: 67 Year
  Sex: Male
  Weight: 76 kg

DRUGS (2)
  1. VIOXX [Suspect]
     Indication: ARTHRITIS
     Route: 048
     Dates: start: 20010604, end: 20040922
  2. ARTHROTEC [Concomitant]
     Route: 065

REACTIONS (3)
  - FALL [None]
  - HERNIA [None]
  - MYOCARDIAL INFARCTION [None]
